FAERS Safety Report 16573653 (Version 2)
Quarter: 2019Q3

REPORT INFORMATION
  Report Type: Spontaneous
  Country: NL (occurrence: NL)
  Receive Date: 20190715
  Receipt Date: 20190813
  Transmission Date: 20191004
  Serious: Yes (Other)
  Sender: FDA-Public Use
  Company Number: NL-PFIZER INC-2017252835

PATIENT
  Age: 60 Year
  Sex: Male

DRUGS (13)
  1. LOSARTAN. [Concomitant]
     Active Substance: LOSARTAN
     Dosage: 50 MG, ONCE DAILY
     Route: 048
  2. METFORMIN [Concomitant]
     Active Substance: METFORMIN HYDROCHLORIDE
     Dosage: 500 MG, TWICE DAILY
     Route: 048
  3. SOMAVERT [Suspect]
     Active Substance: PEGVISOMANT
     Indication: ACROMEGALY
     Dosage: 10 MG, DAILY
     Route: 058
     Dates: start: 20111208
  4. NAPROXEN. [Concomitant]
     Active Substance: NAPROXEN
     Dosage: 500 MG, TWICE DAILY
     Route: 048
  5. OXYCODON [Concomitant]
     Active Substance: OXYCODONE
     Dosage: UNK
     Route: 048
  6. SOMAVERT [Suspect]
     Active Substance: PEGVISOMANT
     Dosage: 80 MG, THRICE WEEKLY
     Route: 058
     Dates: start: 2017
  7. TESTOSTERON [TESTOSTERONE] [Concomitant]
     Dosage: UNK, ONCE DAILY
     Route: 048
  8. LANREOTIDE [Concomitant]
     Active Substance: LANREOTIDE
     Dosage: UNK
  9. SOMAVERT [Suspect]
     Active Substance: PEGVISOMANT
     Dosage: 80 MG, THRICE WEEKLY
     Route: 058
     Dates: start: 2017
  10. VALSARTAN. [Concomitant]
     Active Substance: VALSARTAN
     Dosage: 80 MG, ONCE DAILY
     Route: 048
  11. PANTOPRAZOLE [Concomitant]
     Active Substance: PANTOPRAZOLE
     Dosage: 40 MG, ONCE DAILY
     Route: 048
  12. PARACETAMOL [Concomitant]
     Active Substance: ACETAMINOPHEN
     Dosage: 500 MG, UNK
     Route: 048
  13. OXYCODON [Concomitant]
     Active Substance: OXYCODONE
     Dosage: 5 MG, UNK
     Route: 048

REACTIONS (5)
  - Product use issue [Unknown]
  - Off label use [Unknown]
  - Gait disturbance [Recovering/Resolving]
  - Joint range of motion decreased [Unknown]
  - Osteoarthritis [Unknown]

NARRATIVE: CASE EVENT DATE: 2017
